FAERS Safety Report 5809440-7 (Version None)
Quarter: 2008Q3

REPORT INFORMATION
  Report Type: 
  Country: None (occurrence: None)
  Receive Date: 20080715
  Receipt Date: 20080703
  Transmission Date: 20090109
  Serious: Yes (Hospitalization)
  Sender: FDA-Public Use
  Company Number: FR-WYE-H04903308

PATIENT
  Sex: Female

DRUGS (9)
  1. CORDARONE [Suspect]
     Indication: ATRIAL FIBRILLATION
     Route: 048
     Dates: start: 20080418
  2. PREVISCAN [Interacting]
     Indication: ATRIAL FIBRILLATION
     Route: 048
     Dates: end: 20080610
  3. ACETAMINOPHEN [Concomitant]
     Dosage: UNSPECIFIED
     Route: 048
  4. TAHOR [Interacting]
     Indication: DYSLIPIDAEMIA
     Route: 048
     Dates: end: 20080613
  5. PRAXILENE [Concomitant]
     Dosage: UNSPECIFIED
     Route: 048
     Dates: end: 20080613
  6. LORAZEPAM [Concomitant]
     Dosage: UNSPECIFIED
     Route: 048
  7. CALCIPARINE [Interacting]
     Route: 058
     Dates: start: 20080612, end: 20080614
  8. CALCIPARINE [Interacting]
     Route: 058
     Dates: start: 20080616
  9. AUGMENTIN '125' [Interacting]
     Dosage: UNSPECIFIED
     Dates: start: 20080612, end: 20080613

REACTIONS (3)
  - DRUG INTERACTION [None]
  - INTERNATIONAL NORMALISED RATIO INCREASED [None]
  - PLEURAL EFFUSION [None]
